FAERS Safety Report 4715047-5 (Version None)
Quarter: 2005Q2

REPORT INFORMATION
  Report Type: 
  Country: None (occurrence: None)
  Receive Date: 20050630
  Receipt Date: 20050512
  Transmission Date: 20051028
  Serious: Yes (Other)
  Sender: FDA-Public Use
  Company Number: 214481

PATIENT
  Age: 60 Year
  Sex: Male

DRUGS (4)
  1. AVASTIN [Suspect]
  2. 5FU (FLUOROURACIL) [Concomitant]
  3. LEUCOVORIN CALCIUM [Concomitant]
  4. OXALIPLATIN (OXALIPLATIN) [Concomitant]

REACTIONS (1)
  - PULMONARY EMBOLISM [None]
